FAERS Safety Report 9286667 (Version 2)
Quarter: 2013Q3

REPORT INFORMATION
  Report Type: Spontaneous
  Country: BR (occurrence: BR)
  Receive Date: 20130513
  Receipt Date: 20130826
  Transmission Date: 20140515
  Serious: Yes (Other)
  Sender: FDA-Public Use
  Company Number: PHHY2013BR046947

PATIENT
  Age: 16 Year
  Sex: Male

DRUGS (3)
  1. TEGRETOL [Suspect]
     Indication: CONVULSION
     Dosage: 16 ML, DAILY
     Route: 048
  2. NEULEPTIL [Concomitant]
     Dosage: 15 ML, DAILY
     Route: 048
  3. RISPERIDONE [Concomitant]
     Indication: AUTISM
     Dosage: 1 DF, DAILY
     Route: 048

REACTIONS (2)
  - Loss of consciousness [Recovering/Resolving]
  - Convulsion [Recovering/Resolving]
